FAERS Safety Report 5716919-5 (Version None)
Quarter: 2008Q2

REPORT INFORMATION
  Report Type: 
  Country: None (occurrence: None)
  Receive Date: 20080422
  Receipt Date: 20080414
  Transmission Date: 20081010
  Serious: Yes (Death, Other)
  Sender: FDA-Public Use
  Company Number: 2008SP006999

PATIENT
  Age: 70 Year
  Sex: Male

DRUGS (1)
  1. NOXAFIL [Suspect]
     Indication: PROPHYLAXIS
     Dosage: PO
     Route: 048

REACTIONS (2)
  - BLOOD BILIRUBIN INCREASED [None]
  - SEPSIS [None]
